FAERS Safety Report 7332396-5 (Version None)
Quarter: 2011Q1

REPORT INFORMATION
  Report Type: 
  Country: None (occurrence: None)
  Receive Date: 20110304
  Receipt Date: 20110222
  Transmission Date: 20110831
  Serious: Yes (Other)
  Sender: FDA-Public Use
  Company Number: B0703521A

PATIENT
  Age: 81 Year
  Sex: Male

DRUGS (2)
  1. TOPOTECAN [Suspect]
     Indication: MYELODYSPLASTIC SYNDROME
     Route: 065
  2. ARA-C [Suspect]
     Route: 065

REACTIONS (3)
  - PNEUMONIA [None]
  - PYREXIA [None]
  - SKIN INFECTION [None]
